FAERS Safety Report 10537506 (Version 1)
Quarter: 2014Q4

REPORT INFORMATION
  Report Type: Spontaneous
  Country: US (occurrence: None)
  Receive Date: 20141022
  Receipt Date: 20141022
  Transmission Date: 20150529
  Serious: Yes (Hospitalization)
  Sender: FDA-Public Use
  Company Number: None

PATIENT
  Age: 54 Year
  Sex: Female
  Weight: 41.8 kg

DRUGS (1)
  1. TAXOL [Suspect]
     Active Substance: PACLITAXEL

REACTIONS (1)
  - Chest pain [None]

NARRATIVE: CASE EVENT DATE: 20141021
